FAERS Safety Report 4886629-5 (Version None)
Quarter: 2006Q1

REPORT INFORMATION
  Report Type: 
  Country: None (occurrence: None)
  Receive Date: 20060119
  Receipt Date: 20060113
  Transmission Date: 20060701
  Serious: Yes (Hospitalization)
  Sender: FDA-Public Use
  Company Number: 2006-US-00342

PATIENT
  Age: 53 Year
  Sex: Female

DRUGS (1)
  1. CLOZAPINE [Suspect]
     Indication: AKATHISIA
     Dosage: 650 MG, QD, ORAL
     Route: 048

REACTIONS (12)
  - AGITATION [None]
  - AGRANULOCYTOSIS [None]
  - ASPERGILLOSIS [None]
  - BRONCHOPNEUMONIA [None]
  - GUILLAIN-BARRE SYNDROME [None]
  - IMMUNOGLOBULINS ABNORMAL [None]
  - INFECTION [None]
  - PLEURAL EFFUSION [None]
  - SERRATIA INFECTION [None]
  - SUBCUTANEOUS ABSCESS [None]
  - URINARY INCONTINENCE [None]
  - UROGENITAL DISORDER [None]
